FAERS Safety Report 9181934 (Version 1)
Quarter: 2013Q1

REPORT INFORMATION
  Report Type: Spontaneous
  Country: US (occurrence: US)
  Receive Date: 20130322
  Receipt Date: 20130322
  Transmission Date: 20140127
  Serious: Yes (Other)
  Sender: FDA-Public Use
  Company Number: US-JNJFOC-20130309800

PATIENT
  Age: 12 Year
  Sex: Female
  Weight: 40.82 kg

DRUGS (2)
  1. MOTRIN IB [Suspect]
     Indication: OROPHARYNGEAL PAIN
     Route: 048
     Dates: start: 20130311, end: 20130312
  2. MOTRIN IB [Suspect]
     Indication: PYREXIA
     Route: 048
     Dates: start: 20130311, end: 20130312

REACTIONS (2)
  - Hallucination [Recovered/Resolved]
  - Sleep terror [Recovered/Resolved]
